FAERS Safety Report 10487518 (Version 4)
Quarter: 2014Q4

REPORT INFORMATION
  Report Type: Spontaneous
  Country: US (occurrence: US)
  Receive Date: 20141001
  Receipt Date: 20141230
  Transmission Date: 20150528
  Serious: Yes (Death, Hospitalization)
  Sender: FDA-Public Use
  Company Number: US-ACTELION-A-US2014-105748

PATIENT
  Age: 55 Year
  Sex: Male

DRUGS (7)
  1. CLINDAMYCIN [Suspect]
     Active Substance: CLINDAMYCIN\CLINDAMYCIN PHOSPHATE
     Indication: CELLULITIS
     Dosage: UNK
     Route: 065
     Dates: start: 20140918
  2. VANCOMYCIN [Suspect]
     Active Substance: VANCOMYCIN
     Indication: CELLULITIS
     Dosage: UNK
     Route: 042
     Dates: start: 20140912, end: 20140916
  3. ASPIRIN. [Concomitant]
     Active Substance: ASPIRIN
  4. DAPTOMYCIN. [Suspect]
     Active Substance: DAPTOMYCIN
     Indication: CELLULITIS
     Dosage: UNK
     Route: 065
     Dates: start: 20140916, end: 20140918
  5. OXYGEN. [Concomitant]
     Active Substance: OXYGEN
  6. VELETRI [Suspect]
     Active Substance: EPOPROSTENOL
     Indication: PULMONARY ARTERIAL HYPERTENSION
     Dosage: 12 NG/KG, PER MIN
     Route: 042
     Dates: start: 201407, end: 20140922
  7. WARFARIN [Concomitant]
     Active Substance: WARFARIN
     Dosage: UNK
     Dates: start: 201407

REACTIONS (12)
  - Organising pneumonia [Unknown]
  - Cardio-respiratory arrest [Fatal]
  - Limb injury [Unknown]
  - Hypoxia [Fatal]
  - Cellulitis [Unknown]
  - Respiratory failure [Fatal]
  - Condition aggravated [Fatal]
  - Interstitial lung disease [Unknown]
  - Emphysema [Unknown]
  - Dyspnoea [Fatal]
  - Oxygen consumption increased [Fatal]
  - Pulmonary oedema [Fatal]

NARRATIVE: CASE EVENT DATE: 20140912
